FAERS Safety Report 9023629 (Version 2)
Quarter: 2013Q1

REPORT INFORMATION
  Report Type: Spontaneous
  Country: US (occurrence: US)
  Receive Date: 20130121
  Receipt Date: 20130125
  Transmission Date: 20140127
  Serious: Yes (Death, Hospitalization, Other)
  Sender: FDA-Public Use
  Company Number: US-BAXTER-2013BAX001892

PATIENT
  Age: 93 None
  Sex: Female

DRUGS (2)
  1. DIANEAL LOW CALCIUM [Suspect]
     Indication: PERITONEAL DIALYSIS
     Route: 033
  2. DIANEAL LOW CALCIUM (ULTRABAG) [Suspect]
     Indication: PERITONEAL DIALYSIS
     Route: 033

REACTIONS (12)
  - Myocardial infarction [Fatal]
  - Urosepsis [Fatal]
  - Cardiac failure [Fatal]
  - Peritonitis [Fatal]
  - Confusional state [Unknown]
  - Peritonitis bacterial [Recovered/Resolved]
  - Medication error [Unknown]
  - Poor personal hygiene [Unknown]
  - Peritoneal dialysis complication [Unknown]
  - Diarrhoea [Unknown]
  - Nausea [Unknown]
  - Vomiting [Unknown]
